FAERS Safety Report 6375616-6 (Version None)
Quarter: 2009Q3

REPORT INFORMATION
  Report Type: 
  Country: None (occurrence: None)
  Receive Date: 20090921
  Receipt Date: 20090904
  Transmission Date: 20100115
  Serious: Yes (Disabling, Other)
  Sender: FDA-Public Use
  Company Number: DSA_34121_2009

PATIENT
  Sex: Male
  Weight: 79.3795 kg

DRUGS (4)
  1. XENAZINE [Suspect]
     Indication: HUNTINGTON'S CHOREA
     Dosage: (12.5 MG BID ORAL), (12.5 MG QD ORAL)
     Route: 048
     Dates: start: 20081208
  2. XENAZINE [Suspect]
     Indication: HUNTINGTON'S CHOREA
     Dosage: (12.5 MG BID ORAL), (12.5 MG QD ORAL)
     Route: 048
     Dates: start: 20090501
  3. SERTRALINE HCL [Concomitant]
  4. BUSPIRONE (UNKNOWN) [Concomitant]

REACTIONS (3)
  - ILL-DEFINED DISORDER [None]
  - SPEECH DISORDER [None]
  - TREATMENT NONCOMPLIANCE [None]
